FAERS Safety Report 11359355 (Version 1)
Quarter: 2015Q3

REPORT INFORMATION
  Report Type: Spontaneous
  Country: TR (occurrence: TR)
  Receive Date: 20150807
  Receipt Date: 20150807
  Transmission Date: 20151125
  Serious: Yes (Hospitalization)
  Sender: FDA-Public Use
  Company Number: PHHY2015TR092257

PATIENT
  Age: 53 Year
  Sex: Female

DRUGS (2)
  1. TACROLIMUS. [Suspect]
     Active Substance: TACROLIMUS
     Indication: RENAL TRANSPLANT
     Dosage: 2 MG, QD
     Route: 065
  2. MYCOPHENOLATE MOFETIL. [Suspect]
     Active Substance: MYCOPHENOLATE MOFETIL
     Indication: RENAL TRANSPLANT
     Dosage: 3 G, QD
     Route: 065

REACTIONS (4)
  - Acute myocardial infarction [Recovered/Resolved]
  - Coronary artery stenosis [Recovered/Resolved]
  - Chest pain [Recovered/Resolved]
  - Arteriospasm coronary [Recovered/Resolved]
